FAERS Safety Report 7525094-6 (Version None)
Quarter: 2011Q2

REPORT INFORMATION
  Report Type: 
  Country: None (occurrence: None)
  Receive Date: 20110526
  Receipt Date: 20110513
  Transmission Date: 20111010
  Serious: Yes (Death, Hospitalization)
  Sender: FDA-Public Use
  Company Number: 2011MA005875

PATIENT
  Age: 60 Year
  Sex: Female

DRUGS (1)
  1. PACLITAXEL [Suspect]
     Indication: UTERINE CANCER

REACTIONS (12)
  - ASTHENIA [None]
  - DISCOMFORT [None]
  - TACHYCARDIA [None]
  - ATELECTASIS [None]
  - SEPSIS [None]
  - ABDOMINAL TENDERNESS [None]
  - LUNG CONSOLIDATION [None]
  - HYPOTENSION [None]
  - FATIGUE [None]
  - TUMOUR LYSIS SYNDROME [None]
  - DIALYSIS [None]
  - GENERAL PHYSICAL HEALTH DETERIORATION [None]
